FAERS Safety Report 21284269 (Version 1)
Quarter: 2022Q3

REPORT INFORMATION
  Report Type: Report from Study
  Country: US (occurrence: US)
  Receive Date: 20220902
  Receipt Date: 20220902
  Transmission Date: 20221027
  Serious: No
  Sender: FDA-Public Use
  Company Number: US-BIOVITRUM-2022US10220

PATIENT
  Sex: Male
  Weight: 91 kg

DRUGS (1)
  1. DOPTELET [Suspect]
     Active Substance: AVATROMBOPAG MALEATE
     Indication: Cirrhosis alcoholic
     Dosage: DAILY INTO 5 DAYS

REACTIONS (2)
  - Drug ineffective [Unknown]
  - Off label use [Unknown]
